FAERS Safety Report 6367399-0 (Version None)
Quarter: 2009Q3

REPORT INFORMATION
  Report Type: 
  Country: None (occurrence: None)
  Receive Date: 20090921
  Receipt Date: 20090915
  Transmission Date: 20100115
  Serious: Yes (Other)
  Sender: FDA-Public Use
  Company Number: A0807421A

PATIENT
  Age: 89 Year
  Sex: Female

DRUGS (6)
  1. ZANTAC [Suspect]
     Indication: VOMITING
     Dosage: 1TAB SINGLE DOSE
     Route: 048
     Dates: start: 20090914, end: 20090914
  2. LASIX [Concomitant]
  3. TOPROL-XL [Concomitant]
  4. LANOXIN [Concomitant]
  5. GLUCOTROL [Concomitant]
  6. MICRO-K [Concomitant]

REACTIONS (3)
  - MONOPLEGIA [None]
  - MOVEMENT DISORDER [None]
  - PAIN [None]
